FAERS Safety Report 17606962 (Version 3)
Quarter: 2021Q1

REPORT INFORMATION
  Report Type: Report from Study
  Country: US (occurrence: US)
  Receive Date: 20200331
  Receipt Date: 20210108
  Transmission Date: 20210419
  Serious: Yes (Death, Life-Threatening, Hospitalization, Other)
  Sender: FDA-Public Use
  Company Number: US-BRISTOL-MYERS SQUIBB COMPANY-BMS-2020-022565

PATIENT
  Age: 54 Year
  Sex: Male
  Weight: 120.2 kg

DRUGS (4)
  1. IRINOTECAN LIPOSOME [Suspect]
     Active Substance: IRINOTECAN
     Indication: CHOLANGIOCARCINOMA
     Dosage: 70 MILLIGRAM/SQ. METER, Q2WK
     Route: 042
     Dates: start: 20200130, end: 20200326
  2. 5?FLUOROURACIL [Suspect]
     Active Substance: FLUOROURACIL
     Indication: CHOLANGIOCARCINOMA
     Dosage: 2400 MILLIGRAM/SQ. METER, Q2WK
     Route: 042
     Dates: start: 20200130, end: 20200326
  3. NIVOLUMAB [Suspect]
     Active Substance: NIVOLUMAB
     Indication: CHOLANGIOCARCINOMA
     Dosage: 240 MILLIGRAM, Q2WK
     Route: 042
     Dates: start: 20200130, end: 20200326
  4. LEUCOVORIN CALCIUM. [Suspect]
     Active Substance: LEUCOVORIN CALCIUM
     Indication: CHOLANGIOCARCINOMA
     Dosage: 400 MILLIGRAM/SQ. METER, Q2WK
     Route: 042
     Dates: start: 20200130, end: 20200326

REACTIONS (5)
  - Malignant neoplasm progression [Fatal]
  - Myocarditis [Fatal]
  - Mental status changes [Unknown]
  - Respiratory failure [Unknown]
  - Myasthenia gravis [Not Recovered/Not Resolved]

NARRATIVE: CASE EVENT DATE: 20200307
